FAERS Safety Report 12153416 (Version 2)
Quarter: 2016Q2

REPORT INFORMATION
  Report Type: Spontaneous
  Country: FR (occurrence: FR)
  Receive Date: 20160306
  Receipt Date: 20160513
  Transmission Date: 20160815
  Serious: Yes (Life-Threatening)
  Sender: FDA-Public Use
  Company Number: FR-HOSPIRA-3189912

PATIENT
  Age: 39 Year
  Sex: Male

DRUGS (6)
  1. MIDAZOLAM [Concomitant]
     Active Substance: MIDAZOLAM\MIDAZOLAM HYDROCHLORIDE
     Indication: GENERAL ANAESTHESIA
     Route: 042
     Dates: start: 20160207, end: 20160207
  2. ATRACURIUM BESILATE [Suspect]
     Active Substance: ATRACURIUM BESYLATE
     Indication: GENERAL ANAESTHESIA
     Route: 042
     Dates: start: 20160207, end: 20160207
  3. SUFENTANIL                         /00723502/ [Concomitant]
     Indication: GENERAL ANAESTHESIA
     Route: 042
     Dates: start: 20160207, end: 20160207
  4. PROPOFOL. [Concomitant]
     Active Substance: PROPOFOL
     Indication: GENERAL ANAESTHESIA
     Route: 042
     Dates: start: 20160207, end: 20160207
  5. ZINNAT                             /00454602/ [Concomitant]
     Active Substance: CEFUROXIME SODIUM
     Indication: PRODUCT USED FOR UNKNOWN INDICATION
     Route: 042
     Dates: start: 20160207, end: 20160207
  6. KETAMINE RENAUDIN [Suspect]
     Active Substance: KETAMINE
     Indication: GENERAL ANAESTHESIA
     Route: 042
     Dates: start: 20160207, end: 20160207

REACTIONS (3)
  - Anaphylactic shock [Recovered/Resolved]
  - Oxygen saturation decreased [Recovered/Resolved]
  - Procedural hypotension [Recovered/Resolved]

NARRATIVE: CASE EVENT DATE: 20160207
